FAERS Safety Report 15882865 (Version 2)
Quarter: 2021Q3

REPORT INFORMATION
  Report Type: Report from Study
  Country: JP (occurrence: JP)
  Receive Date: 20190129
  Receipt Date: 20210921
  Transmission Date: 20211014
  Serious: Yes (Life-Threatening)
  Sender: FDA-Public Use
  Company Number: JP-RECORDATI RARE DISEASES INC.-JP-R13005-19-00010

PATIENT
  Age: 15 Day
  Sex: Female
  Weight: 1.08 kg

DRUGS (34)
  1. GENTAMICIN SULFATE. [Concomitant]
     Active Substance: GENTAMICIN SULFATE
     Indication: NEONATAL INFECTION
     Dosage: UNK UNK, UNK
     Route: 042
     Dates: start: 20180901, end: 20180911
  2. ALFAROL [Concomitant]
     Active Substance: ALFACALCIDOL
     Indication: PROPHYLAXIS
     Dosage: UNK, UNK
     Route: 048
     Dates: start: 20180914, end: 20180918
  3. OTSUKA NORMAL SALINE [Concomitant]
     Indication: HYPONATRAEMIA
     Dosage: UNK UNK, UNK
     Route: 042
     Dates: start: 20180916, end: 20180917
  4. NOBELBAR [Concomitant]
     Active Substance: PHENOBARBITAL SODIUM
     Indication: PULMONARY HYPERTENSION
     Dosage: UNK UNK, UNK
     Route: 042
     Dates: start: 20180901, end: 20180909
  5. OTSUKA GLUCOSE [Concomitant]
     Indication: LOW BIRTH WEIGHT BABY
     Dosage: UNK UNK, UNK
     Route: 042
     Dates: start: 20180901, end: 20180913
  6. SODIUM CHLORIDE. [Concomitant]
     Active Substance: SODIUM CHLORIDE
     Indication: HYPONATRAEMIA
     Dosage: UNK, UNK
     Route: 042
     Dates: start: 20180916, end: 20180918
  7. GLUCOSE [Suspect]
     Active Substance: DEXTROSE
     Indication: LOW BIRTH WEIGHT BABY
     Dosage: UNK
     Route: 042
     Dates: start: 20180906, end: 20180918
  8. NEOPROFEN [Suspect]
     Active Substance: IBUPROFEN LYSINE
     Dosage: 10 MILLIGRAM, QD
     Route: 042
     Dates: start: 20180915, end: 20180915
  9. NEOPROFEN [Suspect]
     Active Substance: IBUPROFEN LYSINE
     Dosage: 5 MILLIGRAM, QD
     Route: 042
     Dates: start: 20180917, end: 20180917
  10. NEOPROFEN [Suspect]
     Active Substance: IBUPROFEN LYSINE
     Dosage: UNK
  11. DOPAMINE HYDROCHLORIDE. [Concomitant]
     Active Substance: DOPAMINE HYDROCHLORIDE
     Indication: PULMONARY HYPERTENSION
     Dosage: UNK UNK, UNK
     Route: 042
     Dates: start: 20180901, end: 20180907
  12. DOPAMINE HYDROCHLORIDE. [Concomitant]
     Active Substance: DOPAMINE HYDROCHLORIDE
     Indication: LOW BIRTH WEIGHT BABY
  13. OTSUKA GLUCOSE [Concomitant]
     Dosage: UNK UNK, UNK
     Route: 042
     Dates: start: 20180914, end: 20180918
  14. OTSUKA GLUCOSE [Concomitant]
     Dosage: UNK UNK, UNK
     Route: 042
     Dates: start: 20180915, end: 20180915
  15. SODIUM CHLORIDE. [Concomitant]
     Active Substance: SODIUM CHLORIDE
     Indication: PROPHYLAXIS
     Dosage: UNK, UNK
     Route: 048
     Dates: start: 20180914, end: 20180918
  16. SODIUM PHOSPHATE [Concomitant]
     Active Substance: SODIUM PHOSPHATE
     Indication: PROPHYLAXIS
     Dosage: UNK, UNK
     Route: 042
     Dates: start: 20180916, end: 20180918
  17. NOBELBAR [Concomitant]
     Active Substance: PHENOBARBITAL SODIUM
     Indication: LOW BIRTH WEIGHT BABY
  18. PLEAMIN P [Concomitant]
     Indication: LOW BIRTH WEIGHT BABY
     Dosage: UNK, UNK
     Route: 042
     Dates: start: 20180902, end: 20180915
  19. REHABIX K2 [Concomitant]
     Indication: LOW BIRTH WEIGHT BABY
     Dosage: UNK, UNK
     Route: 042
     Dates: start: 20180903, end: 20180910
  20. SODIUM PHOSPHATE [Concomitant]
     Active Substance: SODIUM PHOSPHATE
     Indication: LOW BIRTH WEIGHT BABY
  21. NEOPROFEN [Suspect]
     Active Substance: IBUPROFEN LYSINE
     Indication: PATENT DUCTUS ARTERIOSUS
     Dosage: 10 MILLIGRAM, QD
     Route: 042
     Dates: start: 20180904, end: 20180904
  22. NEOPROFEN [Suspect]
     Active Substance: IBUPROFEN LYSINE
     Dosage: 5 MILLIGRAM, QD
     Route: 042
     Dates: start: 20180906, end: 20180906
  23. OTSUKA NORMAL SALINE [Concomitant]
     Indication: LOW BIRTH WEIGHT BABY
     Dosage: UNK UNK, UNK
     Route: 042
     Dates: start: 20180901, end: 20180906
  24. NEOPROFEN [Suspect]
     Active Substance: IBUPROFEN LYSINE
     Dosage: 5 MILLIGRAM, QD
     Route: 042
     Dates: start: 20180905, end: 20180905
  25. NEOPROFEN [Suspect]
     Active Substance: IBUPROFEN LYSINE
     Dosage: 5 MILLIGRAM, QD
     Route: 042
     Dates: start: 20180916, end: 20180916
  26. CALCICOL [Concomitant]
     Active Substance: CALCIUM GLUCONATE
     Indication: LOW BIRTH WEIGHT BABY
     Dosage: UNK UNK, UNK
     Route: 042
     Dates: start: 20180831, end: 20180907
  27. VICCILIN [Concomitant]
     Active Substance: AMPICILLIN SODIUM
     Indication: NEONATAL INFECTION
     Dosage: UNK UNK, UNK
     Route: 042
     Dates: start: 20180901, end: 20180912
  28. MULTAMIN [ASCORBIC ACID;BIOTIN;COLECALCIFEROL;CYANOCOBALAMIN;FOLIC ACI [Concomitant]
     Indication: LOW BIRTH WEIGHT BABY
     Dosage: UNK UNK, UNK
     Route: 042
     Dates: start: 20180901, end: 20180913
  29. BIOFERMIN [Concomitant]
     Active Substance: DIETARY SUPPLEMENT\PROBIOTICS
     Indication: LOW BIRTH WEIGHT BABY
     Dosage: UNK, UNK
     Route: 048
     Dates: start: 20180901, end: 20180918
  30. POTASSIUM CHLORIDE. [Concomitant]
     Active Substance: POTASSIUM CHLORIDE
     Indication: PROPHYLAXIS
     Dosage: UNK, UNK
     Route: 065
     Dates: start: 20180904, end: 20180906
  31. PANVITAN [ASCORBIC ACID;DEXPANTHENOL;ERGOCALCIFEROL;NICOTINAMIDE;PYRID [Concomitant]
     Indication: VITAMIN SUPPLEMENTATION
     Dosage: UNK UNK, UNK
     Route: 048
     Dates: start: 20180914, end: 20180918
  32. HEPARIN SODIUM. [Concomitant]
     Active Substance: HEPARIN SODIUM
     Indication: LOW BIRTH WEIGHT BABY
     Dosage: UNK UNK, UNK
     Route: 042
     Dates: start: 20180831, end: 20180917
  33. POTASSIUM CHLORIDE. [Concomitant]
     Active Substance: POTASSIUM CHLORIDE
     Indication: LOW BIRTH WEIGHT BABY
  34. OTSUKA GLUCOSE [Concomitant]
     Indication: LOW BIRTH WEIGHT BABY
     Dosage: UNK
     Route: 042
     Dates: start: 20180915, end: 20180915

REACTIONS (2)
  - Hyponatraemia [Recovered/Resolved]
  - Pulmonary haemorrhage [Recovering/Resolving]

NARRATIVE: CASE EVENT DATE: 20180915
